FAERS Safety Report 14658771 (Version 2)
Quarter: 2018Q2

REPORT INFORMATION
  Report Type: Spontaneous
  Country: ES (occurrence: ES)
  Receive Date: 20180320
  Receipt Date: 20180404
  Transmission Date: 20180711
  Serious: Yes (Other)
  Sender: FDA-Public Use
  Company Number: ES-B.I. PHARMACEUTICALS,INC./RIDGEFIELD-2018-12-000980

PATIENT
  Age: 66 Year
  Sex: Male
  Weight: 82 kg

DRUGS (9)
  1. OMEPRAZOL 20 MG / 28 CAPSULAS [Concomitant]
     Indication: ATRIAL FIBRILLATION
     Dosage: 1 CAPSULA CADA D?A, 20 MG/28 CAPSULAS?1CAPSULE EVERYDAY
     Route: 048
     Dates: start: 20160222
  2. RAMIPRIL 10 MG / 28 COMPRIMIDOS [Concomitant]
     Indication: ESSENTIAL HYPERTENSION
     Dosage: 1 COMPRIMIDO CADA D?A, 10 MG / 28 COMPRIMIDOS?1 TABLET EVERYDAY
     Route: 048
     Dates: start: 20160222
  3. LEVEMIR 100U/ML 5 PLUMAS PREC 3ML SOL INY FLEXPEN [Concomitant]
     Indication: DIABETIC VASCULAR DISORDER
     Dosage: 60UI EN LA CENA, 60UI EN LA COMIDA, 60UI EN EL DESAYUNO? 60 IU AT DINNER, 60 IU AT LUNCH, 60 IU AT B
     Route: 058
     Dates: start: 20160222
  4. VELMETIA 50/1000 MG 56 COMRPIMIDOS RECUBIERTOS [Concomitant]
     Indication: DIABETIC VASCULAR DISORDER
     Dosage: 1 COMPRIMIDO CADA 12 HORAS, 50/1000 MG 56 COMRPIMIDOS RECUBIERTOS?1 TABLET EVERY 12 HOURS
     Route: 048
     Dates: start: 20151117
  5. FUROSEMIDA 40 MG / 30 COMPRIMIDOS [Concomitant]
     Indication: ATRIAL FIBRILLATION
     Dosage: 1 COMPRIMIDO CADA D?A, 40 MG / 30 COMPRIMIDOS?1 TABLET EVERYDAY
     Route: 048
     Dates: start: 20150716
  6. JARDIANCE [Suspect]
     Active Substance: EMPAGLIFLOZIN
     Indication: DIABETIC VASCULAR DISORDER
     Dosage: 1 COMPRIMIDO CADA DIA
     Route: 048
     Dates: start: 20170619, end: 20180322
  7. SINTROM UNO GEIGY 1MG 60 COMPRIMIDOS [Concomitant]
     Indication: ATRIAL FIBRILLATION
     Dosage: SEG?N CONTROLES INR, 1MG 60 COMPRIMIDOS?ACCORDING TO INR CONTROLS
     Route: 048
     Dates: start: 20150716
  8. BISOPROLOL 2,5 MG / 28 COMPRIMIDOS [Concomitant]
     Indication: ATRIAL FIBRILLATION
     Dosage: 1 COMPRIMIDO POR LA MA?ANA, 2,5 MG / 28 COMPRIMIDOS?1 TABLET IN THE MORNING
     Route: 048
     Dates: start: 20150716
  9. ATORVASTATINA 20 MG / 28 COMPRIMIDOS [Concomitant]
     Indication: LIPID METABOLISM DISORDER
     Dosage: 1 COMPRIMIDO CADA DIA, 20 MG/28 COMPRIMIDOS?1 TABLET EVERYDAY
     Route: 048
     Dates: start: 20160222

REACTIONS (1)
  - Skin ulcer [Not Recovered/Not Resolved]

NARRATIVE: CASE EVENT DATE: 20180117
